FAERS Safety Report 11165322 (Version 3)
Quarter: 2015Q3

REPORT INFORMATION
  Report Type: Spontaneous
  Country: US (occurrence: US)
  Receive Date: 20150604
  Receipt Date: 20150701
  Transmission Date: 20151125
  Serious: Yes (Hospitalization)
  Sender: FDA-Public Use
  Company Number: US-UNITED THERAPEUTICS-UNT-2015-003569

PATIENT
  Age: 58 Year
  Sex: Female
  Weight: 63.49 kg

DRUGS (5)
  1. TYVASO [Suspect]
     Active Substance: TREPROSTINIL
     Dosage: 18-54 MCG, QID
  2. LETAIRIS [Concomitant]
     Active Substance: AMBRISENTAN
     Indication: PRODUCT USED FOR UNKNOWN INDICATION
     Dosage: UNK
     Dates: end: 201503
  3. ADCIRCA [Concomitant]
     Active Substance: TADALAFIL
     Indication: PRODUCT USED FOR UNKNOWN INDICATION
     Dosage: UNK
     Dates: start: 201503
  4. TYVASO [Suspect]
     Active Substance: TREPROSTINIL
     Dosage: 18-54 MCG, QID
     Dates: end: 20150516
  5. TYVASO [Suspect]
     Active Substance: TREPROSTINIL
     Indication: PULMONARY HYPERTENSION
     Dosage: 18-54 MCG, QID
     Dates: start: 20150318

REACTIONS (14)
  - Dyspnoea [Not Recovered/Not Resolved]
  - Throat irritation [Unknown]
  - Cough [Unknown]
  - Foot operation [Unknown]
  - Dizziness [Unknown]
  - Myalgia [Unknown]
  - Drug intolerance [Unknown]
  - Dry throat [Unknown]
  - Asthenia [Unknown]
  - Malaise [Unknown]
  - Oropharyngeal pain [Unknown]
  - Dry mouth [Unknown]
  - Headache [Unknown]
  - Arthralgia [Unknown]

NARRATIVE: CASE EVENT DATE: 201503
